FAERS Safety Report 7312828-9 (Version None)
Quarter: 2011Q1

REPORT INFORMATION
  Report Type: 
  Country: None (occurrence: None)
  Receive Date: 20110224
  Receipt Date: 20101012
  Transmission Date: 20110831
  Serious: No
  Sender: FDA-Public Use
  Company Number: US-MYLANLABS-2010S1017077

PATIENT
  Age: 83 Year
  Sex: Male
  Weight: 90.72 kg

DRUGS (2)
  1. PRILOSEC [Concomitant]
     Indication: GASTROOESOPHAGEAL REFLUX DISEASE
     Route: 048
  2. METOPROLOL TARTRATE [Suspect]
     Indication: HEART RATE INCREASED
     Route: 048
     Dates: start: 20091112, end: 20091201

REACTIONS (2)
  - JOINT SWELLING [None]
  - FEELING ABNORMAL [None]
